FAERS Safety Report 8144752-6 (Version None)
Quarter: 2012Q1

REPORT INFORMATION
  Report Type: 
  Country: None (occurrence: None)
  Receive Date: 20120217
  Receipt Date: 20120214
  Transmission Date: 20120608
  Serious: Yes (Life-Threatening, Hospitalization)
  Sender: FDA-Public Use
  Company Number: US-BAYER-2011-068291

PATIENT
  Age: 38 Year
  Sex: Female

DRUGS (36)
  1. LYRICA [Concomitant]
     Dosage: 50 MG, BID
     Route: 048
  2. ATARAX [Concomitant]
     Dosage: 25 MG, QD
     Route: 048
  3. IMIPRAMINE [Concomitant]
     Dosage: 150 MG, BID
     Route: 048
  4. FLEXERIL [Concomitant]
     Dosage: 10 MG, PRN
     Route: 048
  5. LORTAB [Concomitant]
     Dosage: 10 MG, PRN
     Route: 048
  6. YASMIN [Suspect]
  7. PRILOSEC [Concomitant]
     Dosage: 20 MG, QD
     Route: 048
  8. ZYRTEC [Concomitant]
     Dosage: 10 MG, QD
     Route: 048
  9. MORPHINE [Concomitant]
     Dosage: 5 MG, PRN
     Dates: start: 20090623
  10. POTASSIUM PHOSPHATES [Concomitant]
     Dosage: UNK
     Dates: start: 20090624
  11. YAZ [Suspect]
  12. CARDIZEM CD [Concomitant]
     Dosage: 240 MG, QD
     Route: 048
  13. PHENERGAN [Concomitant]
     Dosage: UNK
     Dates: start: 20090805
  14. UNASYN [Concomitant]
     Dosage: 3 MG, UNK
     Dates: start: 20090623
  15. DROSPIRENONE AND ETHINYL ESTRADIOL [Suspect]
  16. ZANAFLEX [Concomitant]
     Dosage: 2 MG, UNK
     Route: 048
  17. PERCOCET [Concomitant]
     Dosage: UNK UNK, PRN
     Route: 048
  18. NYSTATIN [Concomitant]
     Dosage: UNK
     Route: 061
     Dates: start: 20090624
  19. VITAMIN B-12 [Concomitant]
     Route: 048
  20. AXERT [Concomitant]
     Indication: MIGRAINE
     Dosage: 12.5 MG, PRN
     Route: 048
  21. LIDOCAINE W/EPINEPHRIN [Concomitant]
  22. PROPOFOL [Concomitant]
  23. LABETALOL HCL [Concomitant]
     Dosage: 5 UNK, UNK
     Dates: start: 20090624
  24. CRESTOR [Concomitant]
     Dosage: 10 MG, QD
     Route: 048
  25. VICODIN [Concomitant]
     Dosage: UNK UNK, PRN
     Route: 048
  26. VISTARIL [Concomitant]
     Dosage: 25 MG, PRN
     Route: 048
  27. NOVOCAIN [Concomitant]
  28. FENTANYL [Concomitant]
     Dosage: 50 UNK, UNK
     Dates: start: 20090623
  29. DILAUDID [Concomitant]
     Dosage: 0.2 MG, PRN
     Dates: start: 20090623
  30. CLINDAMYCIN [Concomitant]
     Dosage: 150 MG, TID
     Route: 048
  31. METHYLENE BLUE [Concomitant]
  32. FENTANYL [Concomitant]
     Dosage: UNK
     Dates: start: 20090622
  33. ANCEF [Concomitant]
     Dosage: UNK
     Dates: start: 20090622
  34. GENTAMICIN [Concomitant]
     Dosage: UNK
     Dates: start: 20090622
  35. CIPROFLOXACIN [Concomitant]
     Dosage: 400 MG, UNK
     Dates: start: 20090623
  36. LOPRESSOR [Concomitant]
     Dosage: 2 MG, ONCE
     Dates: start: 20090624

REACTIONS (7)
  - ANXIETY [None]
  - EMOTIONAL DISTRESS [None]
  - DEEP VEIN THROMBOSIS [None]
  - THROMBOSIS [None]
  - INJURY [None]
  - PAIN [None]
  - ANHEDONIA [None]
